FAERS Safety Report 10769551 (Version 1)
Quarter: 2015Q1

REPORT INFORMATION
  Report Type: Spontaneous
  Country: BR (occurrence: BR)
  Receive Date: 20150206
  Receipt Date: 20150206
  Transmission Date: 20150721
  Serious: Yes (Other)
  Sender: FDA-Public Use
  Company Number: BR-AMGEN-BRASP2014035725

PATIENT
  Age: 62 Year
  Sex: Male
  Weight: 62 kg

DRUGS (5)
  1. ENBREL [Suspect]
     Active Substance: ETANERCEPT
     Dosage: 50 MG, QWK
     Route: 065
     Dates: start: 201405, end: 201412
  2. ARAVA [Concomitant]
     Active Substance: LEFLUNOMIDE
     Indication: RHEUMATOID ARTHRITIS
     Dosage: 1 CAPSULE OF 20 MG, DAILY
     Dates: start: 201403, end: 201412
  3. ATENOLOL. [Concomitant]
     Active Substance: ATENOLOL
     Indication: BLOOD PRESSURE INCREASED
     Dosage: UNK
     Dates: start: 201212
  4. ENBREL [Suspect]
     Active Substance: ETANERCEPT
     Indication: RHEUMATOID ARTHRITIS
     Dosage: 50 MG, ONCE WEEKLY
     Route: 058
     Dates: start: 201403
  5. ATENOLOL. [Concomitant]
     Active Substance: ATENOLOL
     Indication: BLOOD PRESSURE INCREASED

REACTIONS (24)
  - Inflammation [Not Recovered/Not Resolved]
  - Malaise [Unknown]
  - Injection site swelling [Unknown]
  - Wound infection [Unknown]
  - Hypoaesthesia [Not Recovered/Not Resolved]
  - Dysphagia [Unknown]
  - Pain in extremity [Not Recovered/Not Resolved]
  - Blister rupture [Unknown]
  - Tinnitus [Not Recovered/Not Resolved]
  - Pain [Unknown]
  - Swelling [Not Recovered/Not Resolved]
  - Pruritus [Unknown]
  - Blister [Recovered/Resolved]
  - Wound [Recovered/Resolved]
  - Limb injury [Unknown]
  - Fatigue [Unknown]
  - Dysgeusia [Unknown]
  - Injection site erythema [Unknown]
  - Hypersensitivity [Unknown]
  - Labyrinthitis [Unknown]
  - Blister infected [Unknown]
  - Injection site pain [Unknown]
  - Insomnia [Unknown]
  - Joint swelling [Unknown]

NARRATIVE: CASE EVENT DATE: 2014
